FAERS Safety Report 4562145-5 (Version None)
Quarter: 2005Q1

REPORT INFORMATION
  Report Type: 
  Country: None (occurrence: None)
  Receive Date: 20050125
  Receipt Date: 20050110
  Transmission Date: 20050727
  Serious: Yes (Hospitalization)
  Sender: FDA-Public Use
  Company Number: GXKR2005FR00463

PATIENT
  Age: 87 Year
  Sex: Male

DRUGS (6)
  1. RIMACTANE [Suspect]
     Dosage: 1800 MG, QD, ORAL
     Route: 048
     Dates: start: 20041030
  2. OMEPRAZOLE [Suspect]
     Dosage: 40 MG, QD, ORAL
     Route: 048
     Dates: start: 20030101
  3. GLYBURIDE [Suspect]
     Dosage: 2.5 MG, QD, ORAL
     Route: 048
     Dates: start: 20000101
  4. ACETAMINOPHEN [Suspect]
     Dosage: QD, ORAL
     Route: 048
     Dates: start: 20030101
  5. OMIX (TAMSULOSIN HYDROCHLORIDE) [Suspect]
     Dosage: 0.4 MG, QD, ORAL
     Route: 048
     Dates: start: 19990101
  6. CLAMOXYL   /NET/ (AMOXICILLIN TRIHYDRATE) [Suspect]
     Dosage: QD, ORAL
     Route: 048
     Dates: start: 20041030

REACTIONS (5)
  - CYTOLYTIC HEPATITIS [None]
  - HEPATIC ENZYME INCREASED [None]
  - HEPATITIS CHOLESTATIC [None]
  - LYMPHOPENIA [None]
  - PRURITUS [None]
